FAERS Safety Report 7633751-6 (Version None)
Quarter: 2011Q3

REPORT INFORMATION
  Report Type: 
  Country: None (occurrence: None)
  Receive Date: 20110725
  Receipt Date: 20110720
  Transmission Date: 20111222
  Serious: Yes (Death)
  Sender: FDA-Public Use
  Company Number: US-CELGENEUS-163-21880-11050281

PATIENT
  Sex: Female

DRUGS (3)
  1. PREDNISONE [Concomitant]
     Route: 048
  2. MELPHALAN HYDROCHLORIDE [Concomitant]
     Route: 048
  3. REVLIMID [Suspect]
     Indication: MULTIPLE MYELOMA
     Dosage: 10 MILLIGRAM
     Route: 048
     Dates: start: 20110112

REACTIONS (1)
  - MULTIPLE MYELOMA [None]
